FAERS Safety Report 17355665 (Version 1)
Quarter: 2020Q1

REPORT INFORMATION
  Report Type: Spontaneous
  Country: CL (occurrence: CL)
  Receive Date: 20200131
  Receipt Date: 20200131
  Transmission Date: 20200409
  Serious: Yes (Other)
  Sender: FDA-Public Use
  Company Number: CL-MYLANLABS-2020M1011103

PATIENT
  Age: 62 Year
  Sex: Female

DRUGS (3)
  1. HALDOL [Concomitant]
     Active Substance: HALOPERIDOL
     Indication: BIPOLAR DISORDER
     Dosage: UNK, QD, ? TAB (NO SPECIFIC PRESENTATION)
     Route: 048
     Dates: start: 2017
  2. ZELDOX [Concomitant]
     Active Substance: ZIPRASIDONE
     Indication: BIPOLAR DISORDER
     Dosage: UNK, QD, 1 TAB (NO SPECIFIC PRESENTATION)
     Route: 048
     Dates: start: 2017
  3. LEPONEX [Suspect]
     Active Substance: CLOZAPINE
     Indication: BIPOLAR DISORDER
     Dosage: 400 MILLIGRAM, QD
     Route: 048
     Dates: start: 20180306

REACTIONS (2)
  - Drug ineffective [Not Recovered/Not Resolved]
  - Product use in unapproved indication [Not Recovered/Not Resolved]

NARRATIVE: CASE EVENT DATE: 20180306
